FAERS Safety Report 10354263 (Version 2)
Quarter: 2014Q3

REPORT INFORMATION
  Report Type: Spontaneous
  Country: GB (occurrence: GB)
  Receive Date: 20140731
  Receipt Date: 20140910
  Transmission Date: 20150326
  Serious: Yes (Death, Hospitalization, Other)
  Sender: FDA-Public Use
  Company Number: GB-PFIZER INC-2014211918

PATIENT
  Age: 68 Year
  Sex: Male

DRUGS (8)
  1. FLUOROURACIL. [Interacting]
     Active Substance: FLUOROURACIL
     Dosage: UNK
     Dates: start: 20100531, end: 20140319
  2. CALCIUM FOLINATE [Interacting]
     Active Substance: LEUCOVORIN CALCIUM
     Dosage: UNK
     Dates: start: 20130918, end: 20140319
  3. PREGABALIN. [Suspect]
     Active Substance: PREGABALIN
     Dosage: UNK
  4. AMITRIPTYLINE [Interacting]
     Active Substance: AMITRIPTYLINE
     Dosage: UNK
  5. PREDNISOLONE. [Interacting]
     Active Substance: PREDNISOLONE
     Dosage: UNK
  6. OMEPRAZOLE. [Interacting]
     Active Substance: OMEPRAZOLE
     Dosage: UNK
  7. OXALIPLATIN FRESENIUS KABI [Interacting]
     Active Substance: OXALIPLATIN
     Indication: RECTAL CANCER
     Dosage: OXALIPLATIN 100MG/20MLDOSAGE OF 114 MG OF 14/14 DAYS.
  8. BUPRENORPHINE [Interacting]
     Active Substance: BUPRENORPHINE
     Dosage: UNK

REACTIONS (5)
  - Acute respiratory distress syndrome [Fatal]
  - Subileus [Unknown]
  - Drug interaction [Fatal]
  - Pain [Unknown]
  - Pneumonitis [Fatal]
